FAERS Safety Report 9437438 (Version 1)
Quarter: 2013Q3

REPORT INFORMATION
  Report Type: Spontaneous
  Country: GB (occurrence: None)
  Receive Date: 20130731
  Receipt Date: 20130731
  Transmission Date: 20140515
  Serious: Yes (Other)
  Sender: FDA-Public Use
  Company Number: DSA_55788_2012

PATIENT
  Age: 44 Year
  Sex: Female

DRUGS (1)
  1. ZYBAN [Suspect]
     Dates: start: 20120204, end: 20120224

REACTIONS (2)
  - Exposure during pregnancy [None]
  - Abortion induced [None]
